FAERS Safety Report 12994102 (Version 2)
Quarter: 2019Q3

REPORT INFORMATION
  Report Type: Spontaneous
  Country: US (occurrence: US)
  Receive Date: 20161202
  Receipt Date: 20190701
  Transmission Date: 20191004
  Serious: No
  Sender: FDA-Public Use
  Company Number: US-PFIZER INC-2016554236

PATIENT
  Age: 68 Year
  Sex: Female

DRUGS (3)
  1. FLONASE [Suspect]
     Active Substance: FLUTICASONE PROPIONATE
     Dosage: UNK
  2. DILANTIN [Suspect]
     Active Substance: PHENYTOIN
     Dosage: UNK
  3. NITROFURANTOIN. [Suspect]
     Active Substance: NITROFURANTOIN
     Dosage: UNK

REACTIONS (2)
  - Drug hypersensitivity [Unknown]
  - Rash [Unknown]
